FAERS Safety Report 11629092 (Version 3)
Quarter: 2015Q4

REPORT INFORMATION
  Report Type: Spontaneous
  Country: US (occurrence: US)
  Receive Date: 20151014
  Receipt Date: 20151217
  Transmission Date: 20160304
  Serious: Yes (Hospitalization, Other)
  Sender: FDA-Public Use
  Company Number: US-PFIZER INC-2015340153

PATIENT
  Age: 60 Year
  Sex: Male
  Weight: 86.17 kg

DRUGS (15)
  1. GABAPENTIN. [Concomitant]
     Active Substance: GABAPENTIN
     Indication: NEUROPATHY PERIPHERAL
     Dosage: 300 MG, 3X/DAY
     Dates: start: 2013
  2. NORCO [Concomitant]
     Active Substance: ACETAMINOPHEN\HYDROCODONE BITARTRATE
     Indication: PAIN
     Dosage: (HYDROCODONE BITARTRATE 5 MG, PARACETAMOL 325 MG) 5/325 TABLET EVERY 12 HOURS AS NEEDED
     Dates: start: 2011
  3. LEVEMIR PEN [Concomitant]
     Indication: DIABETES MELLITUS
     Dosage: 50 ML, 1X/DAY (50CC IN THE MORNING)
     Route: 058
  4. CLONIDINE. [Concomitant]
     Active Substance: CLONIDINE
     Dosage: 0.1 MG, (EVERY 6-8 HOURS)
     Route: 048
  5. LYRICA [Suspect]
     Active Substance: PREGABALIN
     Indication: DIABETIC NEUROPATHY
     Dosage: UNK
     Dates: start: 2011
  6. CLONIDINE. [Concomitant]
     Active Substance: CLONIDINE
     Indication: HYPERTENSION
     Dosage: 0.1 MG, 1X/DAY
  7. ATORVASTATIN [Concomitant]
     Active Substance: ATORVASTATIN
     Dosage: 40 MG, 1X/DAY
  8. LYRICA [Suspect]
     Active Substance: PREGABALIN
     Indication: NEUROPATHY PERIPHERAL
     Dosage: 50 MG, 2X/DAY (IN THE MORNING AND AT NIGHT)
     Dates: start: 2014, end: 20150701
  9. METFORMIN [Concomitant]
     Active Substance: METFORMIN HYDROCHLORIDE
     Indication: DIABETES MELLITUS
     Dosage: 1000 MG, 2X/DAY
  10. LISINOPRIL. [Concomitant]
     Active Substance: LISINOPRIL
     Indication: HYPERTENSION
     Dosage: 20 MG, 1X/DAY
  11. OMEPRAZOLE. [Concomitant]
     Active Substance: OMEPRAZOLE
     Dosage: 40 MG, 1X/DAY
  12. AMLODIPINE [Concomitant]
     Active Substance: AMLODIPINE BESYLATE
     Indication: HYPERTENSION
     Dosage: 5 MG, 1X/DAY
  13. CALCIUM [Concomitant]
     Active Substance: CALCIUM
     Indication: BONE DISORDER
     Dosage: 600 MG, 2X/DAY
  14. XANAX [Concomitant]
     Active Substance: ALPRAZOLAM
     Indication: MUSCLE DISORDER
     Dosage: 0.5 MG, AS NEEDED
     Dates: start: 2011
  15. OMEPRAZOLE. [Concomitant]
     Active Substance: OMEPRAZOLE
     Dosage: 3 MG, 1X/DAY

REACTIONS (13)
  - Condition aggravated [Not Recovered/Not Resolved]
  - Weight decreased [Unknown]
  - Fall [Recovered/Resolved with Sequelae]
  - Pain in extremity [Not Recovered/Not Resolved]
  - Drug effect incomplete [Not Recovered/Not Resolved]
  - Impaired work ability [Unknown]
  - Anxiety [Unknown]
  - Terminal insomnia [Unknown]
  - Lower limb fracture [Recovered/Resolved with Sequelae]
  - Condition aggravated [Recovering/Resolving]
  - Sleep disorder [Not Recovered/Not Resolved]
  - Neuropathy peripheral [Not Recovered/Not Resolved]
  - Pain [Recovering/Resolving]

NARRATIVE: CASE EVENT DATE: 20150626
